FAERS Safety Report 7737251-4 (Version None)
Quarter: 2011Q3

REPORT INFORMATION
  Report Type: 
  Country: None (occurrence: None)
  Receive Date: 20110908
  Receipt Date: 20110826
  Transmission Date: 20111222
  Serious: Yes (Other)
  Sender: FDA-Public Use
  Company Number: US-CELGENEUS-163-21880-11061495

PATIENT
  Sex: Female
  Weight: 72.64 kg

DRUGS (17)
  1. DEXAMETHASONE [Concomitant]
     Route: 065
  2. POTASSIUM [Concomitant]
     Route: 065
  3. M.V.I. [Concomitant]
     Route: 065
  4. LORAZEPAM [Concomitant]
     Route: 065
  5. VITAMIN B-12 [Concomitant]
     Route: 065
  6. TETRACYCLINE [Concomitant]
     Route: 065
  7. REVLIMID [Suspect]
     Indication: MULTIPLE MYELOMA
     Dosage: 15 MILLIGRAM
     Route: 048
     Dates: start: 20110208, end: 20110625
  8. ASPIRIN [Concomitant]
     Route: 065
  9. WHOLE BLOOD [Concomitant]
     Route: 041
     Dates: start: 20110801
  10. ZOMETA [Concomitant]
     Route: 065
  11. MULTI-VITAMINS [Concomitant]
     Route: 065
  12. NORVASC [Concomitant]
     Route: 065
  13. NEXIUM [Concomitant]
     Route: 065
  14. GAS-X [Concomitant]
     Route: 065
  15. NADAOLOL [Concomitant]
     Route: 065
  16. BENADRYL [Concomitant]
     Route: 065
  17. WHOLE BLOOD [Concomitant]
     Indication: TRANSFUSION

REACTIONS (3)
  - WHITE BLOOD CELL COUNT DECREASED [None]
  - DIVERTICULITIS [None]
  - CHOLELITHIASIS [None]
